FAERS Safety Report 10169404 (Version 1)
Quarter: 2014Q2

REPORT INFORMATION
  Report Type: Spontaneous
  Country: US (occurrence: US)
  Receive Date: 20140513
  Receipt Date: 20140513
  Transmission Date: 20141212
  Serious: No
  Sender: FDA-Public Use
  Company Number: US-PFIZER INC-2014125786

PATIENT
  Age: 51 Year
  Sex: Female

DRUGS (1)
  1. LYRICA [Suspect]
     Dosage: 150 MG, (3 OR 4 TIMES A DAY)
     Dates: start: 2007

REACTIONS (5)
  - Drug intolerance [Unknown]
  - Feeling drunk [Unknown]
  - Gait disturbance [Unknown]
  - Balance disorder [Unknown]
  - Impaired driving ability [Unknown]
